FAERS Safety Report 4919573-5 (Version None)
Quarter: 2006Q1

REPORT INFORMATION
  Report Type: 
  Country: None (occurrence: None)
  Receive Date: 20060222
  Receipt Date: 20051031
  Transmission Date: 20060701
  Serious: Yes (Hospitalization)
  Sender: FDA-Public Use
  Company Number: US-MERCK-0511USA00322

PATIENT
  Sex: Female
  Weight: 61 kg

DRUGS (4)
  1. VIOXX [Suspect]
     Indication: RHEUMATOID ARTHRITIS
     Route: 048
     Dates: start: 20001213, end: 20030801
  2. CELEBREX [Concomitant]
     Route: 065
     Dates: start: 19990701, end: 20030801
  3. PAXIL [Concomitant]
     Route: 065
     Dates: start: 20010401
  4. ACETAMINOPHEN [Concomitant]
     Route: 065
     Dates: start: 20010401

REACTIONS (11)
  - BLOOD CHOLESTEROL INCREASED [None]
  - CARDIAC MURMUR [None]
  - CEREBROVASCULAR ACCIDENT [None]
  - CHEST PAIN [None]
  - DYSPEPSIA [None]
  - GASTRITIS [None]
  - GASTROOESOPHAGEAL REFLUX DISEASE [None]
  - HAEMORRHAGE [None]
  - RENAL DISORDER [None]
  - THROMBOSIS [None]
  - ULCER [None]
